FAERS Safety Report 8853181 (Version 1)
Quarter: 2012Q4

REPORT INFORMATION
  Report Type: 
  Country: CA (occurrence: CA)
  Receive Date: 20121022
  Receipt Date: 20121022
  Transmission Date: 20130627
  Serious: No
  Sender: FDA-Public Use
  Company Number: CA-TEVA-365679USA

PATIENT
  Age: 22 Year
  Sex: Female

DRUGS (3)
  1. PLAN B [Suspect]
     Indication: CONTRACEPTION
     Dosage: 2 tablets (0.75mg x 2)
     Route: 048
     Dates: start: 201209, end: 201209
  2. PLAN B [Suspect]
     Dosage: 2 tablets (0.75mg x 2)
     Route: 048
     Dates: start: 20121001, end: 20121001
  3. ADVAIR [Concomitant]

REACTIONS (4)
  - Metrorrhagia [Recovered/Resolved]
  - Abdominal pain [Recovering/Resolving]
  - Vaginal discharge [Recovered/Resolved]
  - Menstruation delayed [Unknown]
